FAERS Safety Report 23445265 (Version 3)
Quarter: 2024Q2

REPORT INFORMATION
  Report Type: Report from Study
  Country: IL (occurrence: IL)
  Receive Date: 20240126
  Receipt Date: 20240502
  Transmission Date: 20240715
  Serious: Yes (Hospitalization, Other)
  Sender: FDA-Public Use
  Company Number: IL-54135419TRD4008-69900-9720012003

PATIENT
  Age: 70 Year
  Sex: Male
  Weight: 78 kg

DRUGS (14)
  1. ESKETAMINE [Suspect]
     Active Substance: ESKETAMINE
     Indication: Depression
     Dosage: 2 DEVICES
     Dates: start: 20211212, end: 20211212
  2. ESKETAMINE [Suspect]
     Active Substance: ESKETAMINE
     Dosage: 3 DEVICES
     Dates: start: 20211215, end: 20211215
  3. ESKETAMINE [Suspect]
     Active Substance: ESKETAMINE
     Dosage: 2 DEVICES; THERAPY RECEIVED ON  22-DEC-2021, 26-DEC-2021, 29-DEC-2021 (3 TOTAL DOSES)
     Dates: start: 20211219, end: 20211229
  4. ESKETAMINE [Suspect]
     Active Substance: ESKETAMINE
     Dosage: 3 DEVICES; THERAPY RECEIVED ON 05-JAN-2022, 12-JAN-2022, 19-JAN-2022 (4 TOTAL DOSES)
     Dates: start: 20220102, end: 20220119
  5. ESKETAMINE [Suspect]
     Active Substance: ESKETAMINE
     Dosage: 2 DEVICES; THERAPY RECEIVED ON  02-FEB-2022, 16-FEB-2022, 02-MAR-2022 (4 TOTAL DOSES)
     Dates: start: 20220126, end: 20220302
  6. ESKETAMINE [Suspect]
     Active Substance: ESKETAMINE
     Dosage: 3 DEVICES
     Dates: start: 20220316, end: 20220316
  7. ESKETAMINE [Suspect]
     Active Substance: ESKETAMINE
     Dosage: 2 DEVICES; THERAPY RECEIVED ON 30-MAR-2022, 06-APR-2022, 13-APR-2022, 20-APR-2022, 27-APR-2022, 04-M
     Dates: start: 20220323, end: 20220525
  8. ESKETAMINE [Suspect]
     Active Substance: ESKETAMINE
     Dosage: 3 DEVICES; THERAPY RECEIVED ON  08-JUN-2022, 15-JUN-2022, 22-JUN-2022, 29-JUN-2022, 06-JUL-2022, 13-
     Dates: start: 20220601, end: 20220803
  9. ESKETAMINE [Suspect]
     Active Substance: ESKETAMINE
     Dosage: 2 DEVICES
     Dates: start: 20220810, end: 20220810
  10. ESKETAMINE [Suspect]
     Active Substance: ESKETAMINE
     Dosage: 3 DEVICES; THERAPY RECEIVED ON 24-AUG-2022, 31-AUG-2022, 07-SEP-2022, 14-SEP-2022, 21-SEP-2022, 28-S
     Dates: start: 20220817, end: 20230315
  11. ESKETAMINE [Suspect]
     Active Substance: ESKETAMINE
     Dosage: 56 MG, 10 TOTAL DOSES
     Dates: start: 20230322, end: 20230621
  12. ESKETAMINE [Suspect]
     Active Substance: ESKETAMINE
     Dosage: 84 MG, 1 TOTAL DOSE
     Dates: start: 20230628, end: 20230628
  13. ESKETAMINE [Suspect]
     Active Substance: ESKETAMINE
     Dosage: 56 MG, 2 TOTAL DOSES
     Dates: start: 20230702, end: 20230709
  14. ESKETAMINE [Suspect]
     Active Substance: ESKETAMINE
     Dosage: ^84 MG, 23 TOTAL DOSES^
     Dates: start: 20230716, end: 20240107

REACTIONS (3)
  - Hypoglycaemia [Recovered/Resolved]
  - Blood pressure increased [Recovered/Resolved]
  - Hypertension [Recovered/Resolved]

NARRATIVE: CASE EVENT DATE: 20230404
